FAERS Safety Report 5021515-1 (Version None)
Quarter: 2006Q2

REPORT INFORMATION
  Report Type: 
  Country: None (occurrence: None)
  Receive Date: 20060601
  Receipt Date: 20060309
  Transmission Date: 20061013
  Serious: No
  Sender: FDA-Public Use
  Company Number: 2006PV009968

PATIENT
  Age: 34 Year
  Sex: Female
  Weight: 111.5849 kg

DRUGS (3)
  1. BYETTA [Suspect]
     Indication: DIABETES MELLITUS NON-INSULIN-DEPENDENT
     Dosage: 5 MCG; BID; SC;  10 MCG; BID; SC;  5 MCG; BID; SC
     Route: 058
     Dates: start: 20060124, end: 20060201
  2. BYETTA [Suspect]
     Indication: DIABETES MELLITUS NON-INSULIN-DEPENDENT
     Dosage: 5 MCG; BID; SC;  10 MCG; BID; SC;  5 MCG; BID; SC
     Route: 058
     Dates: start: 20060201, end: 20060305
  3. BYETTA [Suspect]
     Indication: DIABETES MELLITUS NON-INSULIN-DEPENDENT
     Dosage: 5 MCG; BID; SC;  10 MCG; BID; SC;  5 MCG; BID; SC
     Route: 058
     Dates: start: 20060301

REACTIONS (1)
  - INJECTION SITE URTICARIA [None]
